FAERS Safety Report 7106184-9 (Version None)
Quarter: 2010Q4

REPORT INFORMATION
  Report Type: 
  Country: None (occurrence: None)
  Receive Date: 20101116
  Receipt Date: 20100505
  Transmission Date: 20110411
  Serious: Yes (Hospitalization)
  Sender: FDA-Public Use
  Company Number: PHHY2010US75600

PATIENT
  Sex: Female

DRUGS (8)
  1. RECLAST [Suspect]
     Indication: OSTEOPOROSIS POSTMENOPAUSAL
     Dosage: 5MG, ONCE YEARLY
     Route: 042
     Dates: start: 20101006
  2. PRAVASTATIN [Concomitant]
  3. NEXIUM [Concomitant]
  4. METAMUCIL-2 [Concomitant]
  5. LISINOPRIL [Concomitant]
  6. CELEXA [Concomitant]
  7. HUMALOG [Concomitant]
  8. CLARITIN [Concomitant]

REACTIONS (6)
  - BLOOD GLUCOSE INCREASED [None]
  - DIABETIC KETOACIDOSIS [None]
  - HYPERGLYCAEMIA [None]
  - INFLUENZA [None]
  - NAUSEA [None]
  - VOMITING [None]
